FAERS Safety Report 25665142 (Version 2)
Quarter: 2025Q3

REPORT INFORMATION
  Report Type: Spontaneous
  Country: CA (occurrence: CA)
  Receive Date: 20250811
  Receipt Date: 20250818
  Transmission Date: 20251021
  Serious: Yes (Life-Threatening, Hospitalization, Disabling, Other)
  Sender: GRIFOLS
  Company Number: CA-IGSA-BIG0036946

PATIENT
  Age: 35 Year
  Sex: Female
  Weight: 136 kg

DRUGS (4)
  1. GAMUNEX [Suspect]
     Active Substance: HUMAN IMMUNOGLOBULIN G
     Indication: Product used for unknown indication
     Route: 042
     Dates: start: 20250722, end: 20250722
  2. GAMUNEX [Suspect]
     Active Substance: HUMAN IMMUNOGLOBULIN G
     Route: 042
     Dates: start: 20250722, end: 20250722
  3. GAMUNEX [Suspect]
     Active Substance: HUMAN IMMUNOGLOBULIN G
     Route: 042
     Dates: start: 20250723, end: 20250723
  4. GAMUNEX [Suspect]
     Active Substance: HUMAN IMMUNOGLOBULIN G
     Route: 042
     Dates: start: 20250723, end: 20250723

REACTIONS (1)
  - Meningitis aseptic [Recovering/Resolving]

NARRATIVE: CASE EVENT DATE: 20250724
